FAERS Safety Report 9380562 (Version 1)
Quarter: 2013Q3

REPORT INFORMATION
  Report Type: Spontaneous
  Country: US (occurrence: US)
  Receive Date: 20130702
  Receipt Date: 20130702
  Transmission Date: 20140515
  Serious: Yes (Other)
  Sender: FDA-Public Use
  Company Number: US-PFIZER INC-2013193392

PATIENT
  Age: 67 Year
  Sex: Female
  Weight: 90.7 kg

DRUGS (9)
  1. LIPITOR [Suspect]
     Indication: BLOOD CHOLESTEROL INCREASED
     Dosage: 20 MG, 1X/DAY
     Route: 048
     Dates: start: 201305
  2. BENICAR [Suspect]
     Indication: HYPERTENSION
     Dosage: UNK
  3. LASIX [Concomitant]
     Dosage: FOUR TIMES A WEEK
  4. CYCLOBENZAPRINE [Concomitant]
     Indication: NEURALGIA
     Dosage: UNK
  5. CYMBALTA [Concomitant]
     Dosage: UNK
  6. OMEPRAZOLE [Concomitant]
     Indication: GASTROOESOPHAGEAL REFLUX DISEASE
     Dosage: UNK
  7. FOSAMAX [Concomitant]
     Indication: OSTEOPOROSIS
     Dosage: UNK
  8. TOPAMAX [Concomitant]
     Dosage: UNK
  9. SINGULAIR [Concomitant]
     Indication: ASTHMA
     Dosage: UNK

REACTIONS (5)
  - Blood pressure increased [Unknown]
  - Local swelling [Unknown]
  - Local swelling [Unknown]
  - Local swelling [Unknown]
  - Abdominal distension [Unknown]
